FAERS Safety Report 5046435-8 (Version None)
Quarter: 2006Q3

REPORT INFORMATION
  Report Type: 
  Country: None (occurrence: None)
  Receive Date: 20060710
  Receipt Date: 20060705
  Transmission Date: 20061208
  Serious: Yes (Other)
  Sender: FDA-Public Use
  Company Number: US-GLAXOSMITHKLINE-A0611296A

PATIENT

DRUGS (3)
  1. REQUIP [Suspect]
     Indication: RESTLESS LEGS SYNDROME
     Dosage: .5MG PER DAY
     Route: 048
  2. TOPAMAX [Concomitant]
  3. EFFEXOR [Concomitant]

REACTIONS (4)
  - COGNITIVE DISORDER [None]
  - DIZZINESS [None]
  - DYSARTHRIA [None]
  - LOSS OF CONSCIOUSNESS [None]
